FAERS Safety Report 12308610 (Version 10)
Quarter: 2018Q3

REPORT INFORMATION
  Report Type: Report from Study
  Country: FR (occurrence: FR)
  Receive Date: 20160427
  Receipt Date: 20180713
  Transmission Date: 20181010
  Serious: Yes (Hospitalization)
  Sender: FDA-Public Use
  Company Number: FR-ROCHE-1746490

PATIENT
  Age: 73 Year
  Sex: Female
  Weight: 100 kg

DRUGS (23)
  1. ZELITREX [Concomitant]
     Active Substance: VALACYCLOVIR HYDROCHLORIDE
     Indication: INFECTION PROPHYLAXIS
     Route: 065
     Dates: start: 20160301
  2. TOPALGIC (FRANCE) [Concomitant]
     Active Substance: TRAMADOL HYDROCHLORIDE
     Indication: PAIN IN EXTREMITY
     Route: 065
     Dates: start: 20160321, end: 20160322
  3. SOLU?MEDROL [Concomitant]
     Active Substance: METHYLPREDNISOLONE SODIUM SUCCINATE
     Route: 065
     Dates: start: 20160401, end: 20160401
  4. ATEZOLIZUMAB. [Suspect]
     Active Substance: ATEZOLIZUMAB
     Indication: DIFFUSE LARGE B-CELL LYMPHOMA
     Dosage: MOST RECENT DOSE OF ATEZOLIZUMAB 1200 MG ON 14/APR/2016, PRIOR TO EVENT ONSET.
     Route: 042
     Dates: start: 20160414
  5. POLARAMINE [Concomitant]
     Active Substance: DEXCHLORPHENIRAMINE MALEATE
     Indication: PREMEDICATION
     Route: 065
     Dates: start: 20160324, end: 20160324
  6. COVERAM [Concomitant]
     Active Substance: AMLODIPINE\PERINDOPRIL
     Indication: HYPERTENSION
     Route: 065
     Dates: end: 20160422
  7. INEXIUM [Concomitant]
     Active Substance: ESOMEPRAZOLE
     Indication: GASTROOESOPHAGEAL REFLUX DISEASE
  8. LEDERFOLINE [Concomitant]
     Active Substance: LEUCOVORIN CALCIUM
     Indication: VITAMIN SUPPLEMENTATION
     Route: 065
     Dates: start: 20160303
  9. ZOLPIDEM [Concomitant]
     Active Substance: ZOLPIDEM\ZOLPIDEM TARTRATE
     Indication: INSOMNIA
  10. BACTRIM [Concomitant]
     Active Substance: SULFAMETHOXAZOLE\TRIMETHOPRIM
     Indication: INFECTION PROPHYLAXIS
     Route: 065
     Dates: start: 20160303
  11. LOVENOX [Concomitant]
     Active Substance: ENOXAPARIN SODIUM
     Indication: THROMBOSIS PROPHYLAXIS
     Route: 065
     Dates: start: 20160323
  12. LASILIX [Concomitant]
     Active Substance: FUROSEMIDE
     Indication: OEDEMA PERIPHERAL
     Route: 065
     Dates: start: 20160324
  13. OBINUTUZUMAB. [Suspect]
     Active Substance: OBINUTUZUMAB
     Indication: DIFFUSE LARGE B-CELL LYMPHOMA
     Dosage: 1000 MG ADMINISTERED ON DAYS 1 (THE FIRST DOSE WAS SPLIT AND ADMINISTERED OVER 2 DAYS), 8, AND 15 OF
     Route: 042
     Dates: start: 20160324
  14. PRIMPERAN [Concomitant]
     Active Substance: METOCLOPRAMIDE HYDROCHLORIDE
     Indication: PROPHYLAXIS OF NAUSEA AND VOMITING
     Route: 065
     Dates: start: 20160321, end: 20160323
  15. PERFALGAN [Concomitant]
     Active Substance: ACETAMINOPHEN
     Indication: PREMEDICATION
     Route: 065
     Dates: start: 20160324, end: 20160324
  16. LASILIX [Concomitant]
     Active Substance: FUROSEMIDE
     Indication: OEDEMA PERIPHERAL
  17. ZOPHREN [Concomitant]
     Active Substance: ONDANSETRON
     Indication: PROPHYLAXIS OF NAUSEA AND VOMITING
     Route: 065
     Dates: start: 20160321, end: 20160323
  18. POLARAMINE [Concomitant]
     Active Substance: DEXCHLORPHENIRAMINE MALEATE
     Route: 065
     Dates: start: 20160401, end: 20160401
  19. TOPALGIC (FRANCE) [Concomitant]
     Active Substance: TRAMADOL HYDROCHLORIDE
     Indication: LYMPHADENOPATHY
     Route: 065
     Dates: start: 20160324, end: 20160326
  20. PERFALGAN [Concomitant]
     Active Substance: ACETAMINOPHEN
     Route: 065
     Dates: start: 20160401, end: 20160401
  21. SOLU?MEDROL [Concomitant]
     Active Substance: METHYLPREDNISOLONE SODIUM SUCCINATE
     Indication: PREMEDICATION
     Route: 065
     Dates: start: 20160324, end: 20160324
  22. INEGY [Concomitant]
     Active Substance: EZETIMIBE\SIMVASTATIN
     Indication: DYSLIPIDAEMIA
  23. FASTURTEC [Concomitant]
     Active Substance: RASBURICASE
     Indication: PROPHYLAXIS
     Route: 065
     Dates: start: 20160324, end: 20160324

REACTIONS (1)
  - Hyperthermia [Recovered/Resolved]

NARRATIVE: CASE EVENT DATE: 20160417
